FAERS Safety Report 21583065 (Version 1)
Quarter: 2022Q4

REPORT INFORMATION
  Report Type: Other
  Country: DE (occurrence: DE)
  Receive Date: 20221111
  Receipt Date: 20221111
  Transmission Date: 20230113
  Serious: Yes (Other)
  Sender: FDA-Public Use
  Company Number: DE-ROCHE-2510022

PATIENT
  Age: 49 Year
  Sex: Female

DRUGS (13)
  1. OCREVUS [Suspect]
     Active Substance: OCRELIZUMAB
     Indication: Primary progressive multiple sclerosis
     Dosage: NEXT DOSE WAS RECEIVED ON 28/NOV/2019
     Route: 042
     Dates: start: 20191114
  2. OCREVUS [Suspect]
     Active Substance: OCRELIZUMAB
     Route: 042
  3. OCREVUS [Suspect]
     Active Substance: OCRELIZUMAB
     Route: 042
     Dates: start: 20210602
  4. OCREVUS [Suspect]
     Active Substance: OCRELIZUMAB
     Route: 042
     Dates: start: 2021
  5. COMIRNATY [Suspect]
     Active Substance: TOZINAMERAN
     Indication: COVID-19 immunisation
     Dosage: SUBSEQUENT DOSE: 05/MAR/2022.?PLANNED SUBSEQUENT DOSE: 07/APR/2022
     Route: 065
     Dates: start: 20210405
  6. COMIRNATY [Suspect]
     Active Substance: TOZINAMERAN
     Route: 065
     Dates: start: 20210505
  7. NABIXIMOLS [Concomitant]
     Active Substance: NABIXIMOLS
     Dosage: 4 IN THE MORNING, 6 IN THE EVENING
  8. GABAPENTIN [Concomitant]
     Active Substance: GABAPENTIN
     Dosage: (0-0-0-1)AND UP TO 600 MG DAILY AS REQUIRED,
  9. METAMIZOLE [Concomitant]
     Active Substance: METAMIZOLE
     Dosage: 500 MG
  10. VITAMIN D3 [Concomitant]
     Active Substance: CHOLECALCIFEROL
  11. OXYCODONE [Concomitant]
     Active Substance: OXYCODONE
     Dosage: 5 MG, 1X/DAY (MORNING)
  12. NOVALGIN (METAMIZOLE SODIUM) [Concomitant]
     Active Substance: METAMIZOLE SODIUM
     Dosage: 3X/DAY (MOMRNING, NOON, EVENING)
  13. ARCOXIA [Concomitant]
     Active Substance: ETORICOXIB
     Dosage: 60 MG, 2X/DAY (MORNING, EVENING)

REACTIONS (25)
  - Muscle spasticity [Recovering/Resolving]
  - Gait inability [Recovered/Resolved]
  - Gait disturbance [Not Recovered/Not Resolved]
  - SARS-CoV-2 antibody test negative [Not Recovered/Not Resolved]
  - Venous injury [Unknown]
  - Oropharyngeal pain [Recovered/Resolved]
  - Rhinorrhoea [Recovered/Resolved]
  - Poor peripheral circulation [Unknown]
  - Heart rate increased [Recovered/Resolved]
  - Incorrect dose administered [Unknown]
  - Headache [Recovered/Resolved]
  - Headache [Recovered/Resolved]
  - Dry skin [Recovered/Resolved]
  - Dysaesthesia [Not Recovered/Not Resolved]
  - Pain [Not Recovered/Not Resolved]
  - Fatigue [Recovered/Resolved]
  - Drug ineffective [Unknown]
  - Feeling cold [Unknown]
  - Haematoma [Recovered/Resolved]
  - Peripheral swelling [Unknown]
  - Skin exfoliation [Recovered/Resolved]
  - Gait disturbance [Not Recovered/Not Resolved]
  - Muscle spasticity [Not Recovered/Not Resolved]
  - COVID-19 [Unknown]
  - Decreased immune responsiveness [Unknown]

NARRATIVE: CASE EVENT DATE: 20191114
